FAERS Safety Report 25659936 (Version 4)
Quarter: 2025Q3

REPORT INFORMATION
  Report Type: Spontaneous
  Country: US (occurrence: US)
  Receive Date: 20250808
  Receipt Date: 20250909
  Transmission Date: 20251020
  Serious: Yes (Other)
  Sender: SANDOZ
  Company Number: US-SANDOZ-SDZ2025US055708

PATIENT
  Age: 73 Year
  Sex: Female

DRUGS (2)
  1. ZARXIO [Suspect]
     Active Substance: FILGRASTIM-SNDZ
     Indication: Ovarian cancer
     Route: 058
     Dates: start: 20241206
  2. ZARXIO [Suspect]
     Active Substance: FILGRASTIM-SNDZ
     Route: 058
     Dates: start: 20241211

REACTIONS (4)
  - White blood cell count decreased [Unknown]
  - Pain in extremity [Unknown]
  - Drug effect less than expected [Unknown]
  - Product use in unapproved indication [Unknown]

NARRATIVE: CASE EVENT DATE: 20241206
